FAERS Safety Report 10096769 (Version 5)
Quarter: 2014Q2

REPORT INFORMATION
  Report Type: Spontaneous
  Country: CA (occurrence: CA)
  Receive Date: 20140422
  Receipt Date: 20140610
  Transmission Date: 20141212
  Serious: Yes (Hospitalization, Other)
  Sender: FDA-Public Use
  Company Number: CHPA2014CA004021

PATIENT
  Age: 36 Year
  Sex: Female

DRUGS (6)
  1. HABITROL 14 MG [Suspect]
     Indication: SMOKING CESSATION THERAPY
     Dosage: 1 DF, UNK
     Route: 062
     Dates: start: 201402, end: 201402
  2. HABITROL 14 MG [Suspect]
     Dosage: 7 MG, UNK
     Route: 062
  3. HABITROL 7 MG [Suspect]
     Indication: SMOKING CESSATION THERAPY
     Dosage: 2 DF, UNK
     Route: 062
     Dates: start: 201402, end: 201402
  4. PRIVATE LABEL STEP 1 21MG ACCT UNKNOWN [Suspect]
     Indication: SMOKING CESSATION THERAPY
     Dosage: 1 DF, QD
     Route: 062
  5. PRIVATE LABEL STRENGTH UNKNOWN [Suspect]
     Indication: SMOKING CESSATION THERAPY
     Dosage: UNK
  6. NICODERM [Concomitant]
     Indication: SMOKING CESSATION THERAPY
     Dosage: UNK
     Dates: start: 201403

REACTIONS (6)
  - Myocardial infarction [Recovered/Resolved]
  - Feeling abnormal [Recovered/Resolved]
  - Expired product administered [Unknown]
  - Wrong technique in drug usage process [Unknown]
  - Drug ineffective [Unknown]
  - Nicotine dependence [Unknown]
